FAERS Safety Report 9013753 (Version 1)
Quarter: 2013Q1

REPORT INFORMATION
  Report Type: Spontaneous
  Country: US (occurrence: None)
  Receive Date: 20130108
  Receipt Date: 20130108
  Transmission Date: 20140127
  Serious: No
  Sender: FDA-Public Use
  Company Number: None

PATIENT
  Age: 13 Year
  Sex: Female

DRUGS (1)
  1. OMNITROPE [Suspect]
     Dosage: INJECT 1.4 MG UNDER THE SKIN DAILY
     Dates: start: 20120927

REACTIONS (3)
  - Injection site pain [None]
  - Headache [None]
  - Joint crepitation [None]
